FAERS Safety Report 24356227 (Version 2)
Quarter: 2024Q4

REPORT INFORMATION
  Report Type: Spontaneous
  Country: US (occurrence: US)
  Receive Date: 20240924
  Receipt Date: 20241017
  Transmission Date: 20250115
  Serious: Yes (Hospitalization, Other)
  Sender: ALEMBIC
  Company Number: US-ALEMBIC PHARMACUETICALS LIMITED-2024SCAL001375

PATIENT

DRUGS (7)
  1. DONEPEZIL HYDROCHLORIDE [Suspect]
     Active Substance: DONEPEZIL HYDROCHLORIDE
     Indication: Cognitive disorder
     Dosage: 5 MILLIGRAM, QD
     Route: 065
     Dates: start: 202304
  2. DONEPEZIL HYDROCHLORIDE [Suspect]
     Active Substance: DONEPEZIL HYDROCHLORIDE
     Dosage: 10 MILLIGRAM, QD
     Route: 065
     Dates: start: 2023
  3. DONEPEZIL HYDROCHLORIDE [Suspect]
     Active Substance: DONEPEZIL HYDROCHLORIDE
     Dosage: 5 MILLIGRAM, QD
     Route: 065
     Dates: start: 202309
  4. RIVASTIGMINE TARTRATE [Suspect]
     Active Substance: RIVASTIGMINE TARTRATE
     Indication: Cognitive disorder
     Dosage: 1.5 MILLIGRAM, BID
     Route: 065
     Dates: start: 2023
  5. CLOZAPINE [Suspect]
     Active Substance: CLOZAPINE
     Indication: Schizoaffective disorder
     Dosage: 125 MILLIGRAM, QD
     Route: 065
     Dates: start: 202304
  6. CLOZAPINE [Suspect]
     Active Substance: CLOZAPINE
     Dosage: 50 MILLIGRAM
     Route: 065
     Dates: start: 2023
  7. GALANTAMINE [Concomitant]
     Active Substance: GALANTAMINE
     Indication: Cognitive disorder
     Dosage: 4 MILLIGRAM, BID
     Route: 065
     Dates: start: 2023

REACTIONS (17)
  - Delirium [Recovered/Resolved]
  - Salivary hypersecretion [Unknown]
  - Drooling [Unknown]
  - Muscle contractions involuntary [Unknown]
  - Disorientation [Unknown]
  - Mental status changes [Unknown]
  - Speech disorder [Unknown]
  - Patient uncooperative [Unknown]
  - Toxicity to various agents [Unknown]
  - Miosis [Unknown]
  - Fall [Unknown]
  - Urinary incontinence [Unknown]
  - Confusional state [Unknown]
  - Diarrhoea [Unknown]
  - Agitation [Unknown]
  - Gastrointestinal pain [Unknown]
  - Drug ineffective [Unknown]

NARRATIVE: CASE EVENT DATE: 20230101
